FAERS Safety Report 6326789-2 (Version None)
Quarter: 2009Q3

REPORT INFORMATION
  Report Type: 
  Country: None (occurrence: None)
  Receive Date: 20090825
  Receipt Date: 20090813
  Transmission Date: 20100115
  Serious: Yes (Other)
  Sender: FDA-Public Use
  Company Number: ZA-ROCHE-650254

PATIENT
  Sex: Female

DRUGS (2)
  1. TAMIFLU [Suspect]
     Indication: INFLUENZA
     Route: 065
     Dates: start: 20090801
  2. RELENZA [Suspect]
     Indication: INFLUENZA
     Route: 065
     Dates: start: 20090801

REACTIONS (2)
  - NO ADVERSE EVENT [None]
  - PREGNANCY [None]
